FAERS Safety Report 8191684-3 (Version None)
Quarter: 2012Q1

REPORT INFORMATION
  Report Type: 
  Country: None (occurrence: None)
  Receive Date: 20120307
  Receipt Date: 20110602
  Transmission Date: 20120608
  Serious: No
  Sender: FDA-Public Use
  Company Number: US-ASTRAZENECA-2011SE34125

PATIENT
  Age: 16290 Day
  Sex: Male
  Weight: 91.2 kg

DRUGS (1)
  1. ZOMIG [Suspect]
     Indication: MIGRAINE
     Route: 048
     Dates: start: 20110515, end: 20110515

REACTIONS (2)
  - OEDEMA MUCOSAL [None]
  - LIP SWELLING [None]
